FAERS Safety Report 4818032-8 (Version None)
Quarter: 2005Q4

REPORT INFORMATION
  Report Type: 
  Country: None (occurrence: None)
  Receive Date: 20051102
  Receipt Date: 20051027
  Transmission Date: 20060501
  Serious: Yes (Other)
  Sender: FDA-Public Use
  Company Number: US-BRISTOL-MYERS SQUIBB COMPANY-13159470

PATIENT
  Age: 66 Year
  Sex: Female
  Weight: 54 kg

DRUGS (11)
  1. ESTRACE [Suspect]
     Indication: HOT FLUSH
     Dates: start: 19960101, end: 19960101
  2. ESTRADIOL INJ [Suspect]
     Indication: HOT FLUSH
     Dates: start: 19970101, end: 19970101
  3. ESTRADERM [Suspect]
     Indication: HOT FLUSH
     Dates: start: 19840101, end: 19920101
  4. PROVERA [Suspect]
     Indication: HOT FLUSH
     Dates: start: 19840101, end: 19990101
  5. PREMARIN [Suspect]
     Indication: HOT FLUSH
     Dates: start: 19920101, end: 19990101
  6. OGEN [Suspect]
     Indication: HOT FLUSH
     Dates: start: 19990101, end: 19990101
  7. PROMETRIUM [Suspect]
     Indication: HOT FLUSH
     Dates: start: 19990101, end: 19990101
  8. CLIMARA [Suspect]
  9. SYNTHROID [Concomitant]
     Indication: THYROID DISORDER
     Dates: start: 19970101
  10. HYDROXYCHLOROQUINE SULFATE [Concomitant]
     Indication: ARTHRITIS
     Dates: start: 19970101, end: 19980101
  11. LORATADINE [Concomitant]
     Indication: MULTIPLE ALLERGIES
     Dates: start: 19990101, end: 20000101

REACTIONS (1)
  - BREAST CANCER [None]
